FAERS Safety Report 16357217 (Version 1)
Quarter: 2019Q2

REPORT INFORMATION
  Report Type: Spontaneous
  Country: US (occurrence: US)
  Receive Date: 20190527
  Receipt Date: 20190527
  Transmission Date: 20190711
  Serious: Yes (Hospitalization)
  Sender: FDA-Public Use
  Company Number: US-ROCHE-2324869

PATIENT
  Age: 68 Year
  Sex: Female

DRUGS (4)
  1. ACTEMRA [Suspect]
     Active Substance: TOCILIZUMAB
     Indication: RHEUMATOID ARTHRITIS
     Route: 058
     Dates: start: 20161109
  2. METHOTREXATE. [Concomitant]
     Active Substance: METHOTREXATE
  3. PAZEO [Concomitant]
     Active Substance: OLOPATADINE HYDROCHLORIDE
  4. ONDANSETRON [Concomitant]
     Active Substance: ONDANSETRON

REACTIONS (6)
  - Loss of consciousness [Unknown]
  - Fall [Unknown]
  - Cerebrovascular accident [Unknown]
  - Rib fracture [Unknown]
  - Head injury [Unknown]
  - Blood sodium decreased [Unknown]

NARRATIVE: CASE EVENT DATE: 201904
